FAERS Safety Report 17948169 (Version 1)
Quarter: 2020Q2

REPORT INFORMATION
  Report Type: Spontaneous
  Country: US (occurrence: US)
  Receive Date: 20200626
  Receipt Date: 20200626
  Transmission Date: 20200714
  Serious: No
  Sender: FDA-Public Use
  Company Number: None

PATIENT
  Sex: Female

DRUGS (1)
  1. GLATIRAMER ACETATE 20MG/ML MYLAN [Suspect]
     Active Substance: GLATIRAMER ACETATE
     Indication: MULTIPLE SCLEROSIS
     Route: 058
     Dates: start: 20180614

REACTIONS (5)
  - Lumbar vertebral fracture [None]
  - Lower limb fracture [None]
  - Therapy cessation [None]
  - Anaphylactic shock [None]
  - Cervical vertebral fracture [None]
